FAERS Safety Report 18291062 (Version 2)
Quarter: 2020Q4

REPORT INFORMATION
  Report Type: Report from Study
  Country: CA (occurrence: CA)
  Receive Date: 20200921
  Receipt Date: 20201028
  Transmission Date: 20210113
  Serious: Yes (Other)
  Sender: FDA-Public Use
  Company Number: CA-JNJFOC-20200921914

PATIENT
  Age: 37 Year
  Sex: Male
  Weight: 69.7 kg

DRUGS (3)
  1. REMICADE [Suspect]
     Active Substance: INFLIXIMAB
     Indication: CROHN^S DISEASE
     Dosage: ALSO RECEIVED INFUSION ON 09-MAR-2020. ON 10-SEP-2020, THE PATIENT RECEIVED 10TH 300 MG INFLIXIMAB I
     Route: 042
     Dates: start: 20101026
  2. PREDNISONE. [Concomitant]
     Active Substance: PREDNISONE
     Indication: PRODUCT USED FOR UNKNOWN INDICATION
     Route: 048
  3. REMICADE [Suspect]
     Active Substance: INFLIXIMAB
     Dosage: ALSO RECEIVED INFUSION ON 09-MAR-2020. ON 10-SEP-2020, THE PATIENT RECEIVED 10TH 300 MG INFLIXIMAB I
     Route: 042
     Dates: start: 20191202

REACTIONS (8)
  - Weight increased [Unknown]
  - Abdominal pain [Not Recovered/Not Resolved]
  - Infusion related reaction [Recovered/Resolved]
  - Postoperative wound infection [Unknown]
  - Rash pruritic [Not Recovered/Not Resolved]
  - Intestinal resection [Unknown]
  - Faeces soft [Unknown]
  - General physical health deterioration [Unknown]

NARRATIVE: CASE EVENT DATE: 2020
